FAERS Safety Report 6915778-2 (Version None)
Quarter: 2010Q3

REPORT INFORMATION
  Report Type: 
  Country: None (occurrence: None)
  Receive Date: 20100810
  Receipt Date: 20100106
  Transmission Date: 20110219
  Serious: No
  Sender: FDA-Public Use
  Company Number: A0838601A

PATIENT
  Age: 23 Year
  Sex: Male
  Weight: 90.9 kg

DRUGS (5)
  1. PAXIL [Suspect]
     Indication: DEPRESSION
     Dosage: 30MG IN THE MORNING
     Route: 048
     Dates: start: 20090101
  2. PAXIL [Suspect]
     Dosage: 15MG AT NIGHT
     Route: 048
     Dates: start: 20090101
  3. ADDERALL XR 10 [Suspect]
     Indication: ATTENTION DEFICIT/HYPERACTIVITY DISORDER
     Dosage: 30MG PER DAY
     Route: 048
     Dates: start: 20090101
  4. CLARITIN [Concomitant]
  5. ALBUTEROL [Concomitant]

REACTIONS (5)
  - AGITATION [None]
  - CONDITION AGGRAVATED [None]
  - FEELING ABNORMAL [None]
  - HEADACHE [None]
  - LOSS OF EMPLOYMENT [None]
